FAERS Safety Report 18092323 (Version 1)
Quarter: 2020Q3

REPORT INFORMATION
  Report Type: Spontaneous
  Country: US (occurrence: US)
  Receive Date: 20200730
  Receipt Date: 20200730
  Transmission Date: 20201103
  Serious: No
  Sender: FDA-Public Use
  Company Number: US-SA-2020SA197445

PATIENT

DRUGS (1)
  1. DUPIXENT [Suspect]
     Active Substance: DUPILUMAB
     Indication: DERMATITIS ATOPIC
     Dosage: 300 MG, QOW
     Route: 058

REACTIONS (5)
  - Pruritus [Recovering/Resolving]
  - Dry skin [Recovering/Resolving]
  - Rash macular [Recovering/Resolving]
  - Hyperhidrosis [Unknown]
  - Skin burning sensation [Recovering/Resolving]
